FAERS Safety Report 18764381 (Version 1)
Quarter: 2021Q1

REPORT INFORMATION
  Report Type: Spontaneous
  Country: US (occurrence: US)
  Receive Date: 20210120
  Receipt Date: 20210120
  Transmission Date: 20210419
  Serious: No
  Sender: FDA-Public Use
  Company Number: US-TEVA-2021-US-1870417

PATIENT
  Age: 63 Year
  Sex: Male
  Weight: 133.79 kg

DRUGS (1)
  1. MUCUS D [Suspect]
     Active Substance: GUAIFENESIN\PSEUDOEPHEDRINE HYDROCHLORIDE
     Indication: UPPER RESPIRATORY TRACT CONGESTION
     Dosage: PSEUDOEPHEDRINE HYDROCHLORIDE 60 MG, GUAIFENESIN 600 MG) PROLONGED?RELEASE, 1 TABLET SINGLE
     Route: 048
     Dates: start: 20210110, end: 20210110

REACTIONS (3)
  - Wrong technique in product usage process [Unknown]
  - Abdominal pain upper [Recovered/Resolved]
  - Underdose [Unknown]

NARRATIVE: CASE EVENT DATE: 20210110
